FAERS Safety Report 24705499 (Version 1)
Quarter: 2024Q4

REPORT INFORMATION
  Report Type: Spontaneous
  Country: US (occurrence: None)
  Receive Date: 20241205
  Receipt Date: 20241205
  Transmission Date: 20250114
  Serious: Yes (Other)
  Sender: Public
  Company Number: None

PATIENT
  Age: 53 Year
  Sex: Male
  Weight: 155.7 kg

DRUGS (11)
  1. ARIPIPRAZOLE [Suspect]
     Active Substance: ARIPIPRAZOLE
     Indication: Post-traumatic stress disorder
     Dosage: FREQUENCY : AT BEDTIME;?
     Route: 048
     Dates: start: 20240406, end: 20241115
  2. ARIPIPRAZOLE [Suspect]
     Active Substance: ARIPIPRAZOLE
     Indication: Major depression
  3. VRAYLAR [Concomitant]
     Active Substance: CARIPRAZINE
  4. BUPROPION [Concomitant]
     Active Substance: BUPROPION
  5. SERTRALINE [Concomitant]
     Active Substance: SERTRALINE HYDROCHLORIDE
  6. TRAZODONE [Concomitant]
     Active Substance: TRAZODONE HYDROCHLORIDE
  7. GABAPENTIN [Concomitant]
     Active Substance: GABAPENTIN
  8. D3-K2 [Concomitant]
  9. IRON [Concomitant]
     Active Substance: IRON
  10. B12 [Concomitant]
  11. FOLIC ACID [Concomitant]
     Active Substance: FOLIC ACID

REACTIONS (8)
  - Obsessive-compulsive disorder [None]
  - Homosexuality [None]
  - Sexually inappropriate behaviour [None]
  - Depression [None]
  - Cardiac disorder [None]
  - Pregnancy of partner [None]
  - Therapy interrupted [None]
  - Quality of life decreased [None]

NARRATIVE: CASE EVENT DATE: 20240406
